FAERS Safety Report 9355213 (Version 1)
Quarter: 2013Q2

REPORT INFORMATION
  Report Type: Spontaneous
  Country: AU (occurrence: AU)
  Receive Date: 20130619
  Receipt Date: 20130619
  Transmission Date: 20140414
  Serious: Yes (Other)
  Sender: FDA-Public Use
  Company Number: PHHY2013AU061218

PATIENT
  Sex: Female

DRUGS (3)
  1. BACLOFEN [Suspect]
  2. DARIFENACIN [Interacting]
  3. OXYBUTYNIN HYDROCHLORIDE, S- [Interacting]

REACTIONS (3)
  - Confusional state [Unknown]
  - Somnolence [Unknown]
  - Drug interaction [None]
